FAERS Safety Report 6902272-8 (Version None)
Quarter: 2010Q3

REPORT INFORMATION
  Report Type: 
  Country: None (occurrence: None)
  Receive Date: 20100803
  Receipt Date: 20080507
  Transmission Date: 20110219
  Serious: No
  Sender: FDA-Public Use
  Company Number: US-PFIZER INC-2008023133

PATIENT
  Sex: Female
  Weight: 100.2 kg

DRUGS (5)
  1. LYRICA [Suspect]
     Indication: NEURALGIA
     Route: 048
     Dates: start: 20070101
  2. PROZAC [Concomitant]
  3. AMBIEN [Concomitant]
  4. CALCIUM [Concomitant]
  5. FIBRE, DIETARY [Concomitant]

REACTIONS (1)
  - CARDIOMEGALY [None]
